FAERS Safety Report 21918652 (Version 1)
Quarter: 2023Q1

REPORT INFORMATION
  Report Type: Spontaneous
  Country: US (occurrence: None)
  Receive Date: 20230126
  Receipt Date: 20230126
  Transmission Date: 20230418
  Serious: No
  Sender: FDA-Public Use
  Company Number: None

PATIENT
  Age: 77 Year
  Sex: Female

DRUGS (1)
  1. CAPECITABINE [Suspect]
     Active Substance: CAPECITABINE
     Dosage: FREQUENCY : TWICE A DAY;?
     Route: 048

REACTIONS (10)
  - Diarrhoea [None]
  - Constipation [None]
  - Pain in extremity [None]
  - Lacrimation increased [None]
  - Vision blurred [None]
  - Fatigue [None]
  - Taste disorder [None]
  - Thrombosis [None]
  - Diverticulitis [None]
  - Erythema [None]

NARRATIVE: CASE EVENT DATE: 20221107
